FAERS Safety Report 24369414 (Version 1)
Quarter: 2024Q3

REPORT INFORMATION
  Report Type: Report from Study
  Country: US (occurrence: US)
  Receive Date: 20240927
  Receipt Date: 20240927
  Transmission Date: 20241016
  Serious: No
  Sender: ROCHE
  Company Number: US-ROCHE-3316576

PATIENT
  Age: 43 Year
  Sex: Female

DRUGS (4)
  1. LUCENTIS [Suspect]
     Active Substance: RANIBIZUMAB
     Indication: Macular degeneration
     Dosage: INJECT OS 0.5MG EVERY 28 DAYS ?DATE OF TREATMENT: 22/MAR/2021, 02/MAR/2023, 14/MAR/2023, 18/MAY/2023
     Route: 065
  2. LUCENTIS [Suspect]
     Active Substance: RANIBIZUMAB
  3. VABYSMO [Suspect]
     Active Substance: FARICIMAB-SVOA
     Indication: Macular degeneration
     Dosage: DATE OF SERVICE: 28/DEC/2023,  25/JAN/2024, 27/FEB/2024, /MAR/2024, /APR/2024, DATE OF SERVICE: 18/A
     Route: 065
  4. VABYSMO [Suspect]
     Active Substance: FARICIMAB-SVOA
     Indication: Oedema

REACTIONS (2)
  - Off label use [Unknown]
  - No adverse event [Unknown]
